FAERS Safety Report 8902118 (Version 2)
Quarter: 2012Q4

REPORT INFORMATION
  Report Type: Report from Study
  Country: DE (occurrence: DE)
  Receive Date: 20121112
  Receipt Date: 20121121
  Transmission Date: 20130627
  Serious: Yes (Hospitalization)
  Sender: FDA-Public Use
  Company Number: DE-JNJFOC-20121103989

PATIENT
  Age: 16 Year
  Sex: Female
  Weight: 43.7 kg

DRUGS (3)
  1. REMICADE [Suspect]
     Indication: CROHN^S DISEASE
     Route: 042
     Dates: start: 20120121
  2. HUMIRA [Concomitant]
     Indication: CROHN^S DISEASE
     Route: 065
     Dates: start: 20120320
  3. ANTIBIOTICS [Concomitant]
     Indication: CROHN^S DISEASE

REACTIONS (1)
  - Rectal stenosis [Recovered/Resolved]
